FAERS Safety Report 12403228 (Version 6)
Quarter: 2016Q3

REPORT INFORMATION
  Report Type: Spontaneous
  Country: US (occurrence: US)
  Receive Date: 20160525
  Receipt Date: 20160912
  Transmission Date: 20161109
  Serious: No
  Sender: FDA-Public Use
  Company Number: US-ACTELION-A-US2016-136592

PATIENT
  Age: 92 Year
  Sex: Male

DRUGS (3)
  1. TRACLEER [Suspect]
     Active Substance: BOSENTAN
     Indication: PULMONARY ARTERIAL HYPERTENSION
     Dosage: 187.5 MG, BID
     Route: 048
     Dates: start: 20130128
  2. RIOCIGUAT [Suspect]
     Active Substance: RIOCIGUAT
     Indication: PRODUCT USED FOR UNKNOWN INDICATION
     Dosage: 2.5 MG, TID
     Route: 048
  3. DILTIAZEM. [Concomitant]
     Active Substance: DILTIAZEM

REACTIONS (17)
  - Lethargy [Unknown]
  - Contusion [Unknown]
  - Blood glucose decreased [Unknown]
  - Somnolence [Unknown]
  - Tremor [Unknown]
  - Dizziness [Unknown]
  - Fatigue [Unknown]
  - Diarrhoea [Unknown]
  - Feeling abnormal [Unknown]
  - Proctalgia [Unknown]
  - Fall [Unknown]
  - Nausea [Unknown]
  - Hypotension [Unknown]
  - Malaise [Unknown]
  - Asthenia [Unknown]
  - Abdominal pain [Unknown]
  - Confusional state [Unknown]
